FAERS Safety Report 7452193-X (Version None)
Quarter: 2011Q2

REPORT INFORMATION
  Report Type: 
  Country: None (occurrence: None)
  Receive Date: 20110502
  Receipt Date: 20110321
  Transmission Date: 20111010
  Serious: Yes (Other)
  Sender: FDA-Public Use
  Company Number: US-BAYER-2010-002157

PATIENT
  Sex: Female
  Weight: 52.154 kg

DRUGS (6)
  1. YAZ [Suspect]
     Indication: CONTRACEPTION
     Dosage: UNK
     Dates: start: 20030101, end: 20090101
  2. ACETAMINOPHEN AND HYDROCODONE BITARTRATE [Concomitant]
     Route: 048
  3. ORTHO EVRA [Concomitant]
     Dosage: UNK
     Dates: start: 20050701, end: 20060301
  4. TYLENOL PM [Concomitant]
     Route: 048
  5. YASMIN [Suspect]
     Indication: CONTRACEPTION
     Dosage: UNK
     Dates: start: 20030101, end: 20090101
  6. PAXIL [Concomitant]
     Route: 048

REACTIONS (25)
  - MOOD SWINGS [None]
  - ASTHMA [None]
  - DEPRESSION [None]
  - DYSPNOEA [None]
  - SELF ESTEEM DECREASED [None]
  - DRUG EXPOSURE BEFORE PREGNANCY [None]
  - INSOMNIA [None]
  - THYROID CYST [None]
  - GASTROOESOPHAGEAL REFLUX DISEASE [None]
  - GENERALISED ANXIETY DISORDER [None]
  - ASTHENIA [None]
  - ENDOMETRIOSIS [None]
  - GALLBLADDER INJURY [None]
  - MENORRHAGIA [None]
  - PANIC ATTACK [None]
  - ANHEDONIA [None]
  - FATIGUE [None]
  - DECREASED INTEREST [None]
  - DIZZINESS [None]
  - DISTURBANCE IN ATTENTION [None]
  - HYPERSOMNIA [None]
  - PREGNANCY [None]
  - HEADACHE [None]
  - AMNESIA [None]
  - DEATH OF RELATIVE [None]
